FAERS Safety Report 20209441 (Version 10)
Quarter: 2023Q1

REPORT INFORMATION
  Report Type: Report from Study
  Country: JP (occurrence: JP)
  Receive Date: 20211221
  Receipt Date: 20230116
  Transmission Date: 20230417
  Serious: Yes (Other)
  Sender: FDA-Public Use
  Company Number: JP-ASTELLAS-2021JP024266

PATIENT
  Age: 69 Year
  Sex: Male
  Weight: 55 kg

DRUGS (7)
  1. ENFORTUMAB VEDOTIN [Suspect]
     Active Substance: ENFORTUMAB VEDOTIN
     Indication: Metastatic carcinoma of the bladder
     Route: 041
     Dates: start: 20211214, end: 20220420
  2. ENFORTUMAB VEDOTIN [Suspect]
     Active Substance: ENFORTUMAB VEDOTIN
     Dosage: 1.00 MG/KG, UNKNOWN FREQ.
     Route: 041
     Dates: start: 20220511, end: 20220817
  3. ENFORTUMAB VEDOTIN [Suspect]
     Active Substance: ENFORTUMAB VEDOTIN
     Dosage: 0.75 MG/KG, UNKNOWN FREQ.
     Route: 041
     Dates: start: 20220831, end: 20220928
  4. ENFORTUMAB VEDOTIN [Suspect]
     Active Substance: ENFORTUMAB VEDOTIN
     Dosage: UNK UNK, UNKNOWN FREQ.
     Route: 065
     Dates: start: 202211
  5. PACLITAXEL [Suspect]
     Active Substance: PACLITAXEL
     Indication: Transitional cell carcinoma
     Dosage: UNK UNK, UNKNOWN FREQ.
     Route: 065
     Dates: start: 20191024, end: 20200325
  6. PACLITAXEL [Suspect]
     Active Substance: PACLITAXEL
     Dosage: UNK UNK, UNKNOWN FREQ.
     Route: 065
     Dates: start: 20201223, end: 20210303
  7. FEBUXOSTAT [Concomitant]
     Active Substance: FEBUXOSTAT
     Indication: Product used for unknown indication
     Dosage: UNK UNK, UNKNOWN FREQ.
     Route: 048

REACTIONS (5)
  - Vascular device occlusion [Recovered/Resolved]
  - Neuropathy peripheral [Not Recovered/Not Resolved]
  - Neuropathy peripheral [Not Recovered/Not Resolved]
  - Hypoaesthesia [Not Recovered/Not Resolved]
  - Vision blurred [Not Recovered/Not Resolved]

NARRATIVE: CASE EVENT DATE: 20211214
